FAERS Safety Report 6288784-1 (Version None)
Quarter: 2009Q3

REPORT INFORMATION
  Report Type: 
  Country: None (occurrence: None)
  Receive Date: 20090729
  Receipt Date: 20080425
  Transmission Date: 20100115
  Serious: Yes (Other)
  Sender: FDA-Public Use
  Company Number: US-ASTRAZENECA-2007UW19282

PATIENT
  Age: 21068 Day
  Sex: Male
  Weight: 83.9 kg

DRUGS (11)
  1. SEROQUEL [Suspect]
     Indication: SLEEP DISORDER
     Dosage: 25-100 MG
     Route: 048
     Dates: start: 20050302, end: 20060217
  2. SEROQUEL [Suspect]
     Route: 048
     Dates: start: 20050929, end: 20060217
  3. CLOBETASOL PROPIONATE [Concomitant]
     Dosage: APPLY SMALL AMOUNT TWO TIMES A DAY ON AFFECTED AREA
  4. ASPIRIN [Concomitant]
     Indication: ANTIPLATELET THERAPY
     Route: 048
  5. RISPERIDONE [Concomitant]
     Indication: AFFECTIVE DISORDER
     Route: 048
  6. RISPERIDONE [Concomitant]
     Indication: NIGHTMARE
     Route: 048
  7. ATENOLOL [Concomitant]
     Indication: BLOOD PRESSURE
     Dosage: 25-50 MG
     Route: 048
  8. AMLODIPINE BESYLATE [Concomitant]
     Indication: BLOOD PRESSURE
     Dosage: 10 MG ONE-HALF TABLETS EVERYDAY
     Route: 048
  9. NAPROXEN [Concomitant]
     Indication: ARTHRITIS
     Route: 048
  10. NAPROXEN [Concomitant]
     Indication: PAIN
     Route: 048
  11. ZOCOR [Concomitant]
     Indication: BLOOD CHOLESTEROL
     Dosage: 40 MG ONE-HALF TABLETS DAILY
     Route: 048

REACTIONS (2)
  - DIABETES MELLITUS [None]
  - NEUROPATHY PERIPHERAL [None]
